FAERS Safety Report 10502684 (Version 1)
Quarter: 2014Q4

REPORT INFORMATION
  Report Type: Spontaneous
  Country: US (occurrence: US)
  Receive Date: 20141007
  Receipt Date: 20141007
  Transmission Date: 20150528
  Serious: No
  Sender: FDA-Public Use
  Company Number: US-PFIZER INC-2014271743

PATIENT
  Age: 6 Year
  Sex: Male

DRUGS (1)
  1. AZITHROMYCIN [Suspect]
     Active Substance: AZITHROMYCIN ANHYDROUS
     Indication: PNEUMONIA
     Dosage: 4 ML, 250MG/5ML

REACTIONS (10)
  - Cough [Unknown]
  - Muscle swelling [Unknown]
  - Blister [Unknown]
  - Oral mucosal discolouration [Recovered/Resolved]
  - Vomiting [Unknown]
  - Urticaria [Unknown]
  - Hyperhidrosis [Unknown]
  - Peripheral swelling [Unknown]
  - Oropharyngeal pain [Unknown]
  - Hot flush [Recovered/Resolved]
